FAERS Safety Report 4317817-4 (Version None)
Quarter: 2004Q1

REPORT INFORMATION
  Report Type: 
  Country: None (occurrence: None)
  Receive Date: 20040316
  Receipt Date: 20040308
  Transmission Date: 20041129
  Serious: Yes (Death)
  Sender: FDA-Public Use
  Company Number: GB-ROCHE-360970

PATIENT
  Sex: Female

DRUGS (2)
  1. CAPECITABINE [Suspect]
     Route: 065
     Dates: start: 20030730
  2. OXALIPLATIN [Suspect]
     Route: 065
     Dates: start: 20030730

REACTIONS (7)
  - BLOOD PRESSURE DECREASED [None]
  - CARDIO-RESPIRATORY ARREST [None]
  - CORONARY ARTERY DISEASE [None]
  - DEPRESSED LEVEL OF CONSCIOUSNESS [None]
  - DIARRHOEA [None]
  - GENERAL PHYSICAL HEALTH DETERIORATION [None]
  - LEFT VENTRICULAR FAILURE [None]
